FAERS Safety Report 9521137 (Version 1)
Quarter: 2013Q1

REPORT INFORMATION
  Report Type: Spontaneous
  Country: US (occurrence: None)
  Receive Date: 20130305
  Receipt Date: 20130305
  Transmission Date: 20140127
  Serious: Yes (Other)
  Sender: FDA-Public Use
  Company Number: 163-21880-12073053

PATIENT
  Age: 49 Year
  Sex: Female
  Weight: 58.06 kg

DRUGS (7)
  1. REVLIMID (LENALIDOMIDE) (CAPSULES) [Suspect]
     Indication: 5Q MINUS SYNDROME
     Route: 048
     Dates: start: 20120110
  2. CALTRATE (CALCIUM CARBONATE) [Concomitant]
  3. EXJADE (DEFERASIROX) [Concomitant]
  4. FOSAMAX (ALENDRONATE SODIUM) [Concomitant]
  5. PROPAFENONE (PROPAFENONE) [Concomitant]
  6. TOPROL (METOPROLOL SUCCINATE) [Concomitant]
  7. VITAMIN D (ERGOCALCIFEROL) [Concomitant]

REACTIONS (1)
  - Platelet count decreased [None]
